FAERS Safety Report 24190345 (Version 1)
Quarter: 2024Q3

REPORT INFORMATION
  Report Type: Spontaneous
  Country: US (occurrence: None)
  Receive Date: 20240807
  Receipt Date: 20240807
  Transmission Date: 20241016
  Serious: Yes (Other)
  Sender: Public
  Company Number: None

PATIENT
  Age: 65 Year
  Sex: Female
  Weight: 79.65 kg

DRUGS (18)
  1. LAMOTRIGINE [Suspect]
     Active Substance: LAMOTRIGINE
     Indication: Depression
     Dosage: FREQUENCY : AT BEDTIME;?
     Route: 048
     Dates: start: 20240621
  2. SYNTHROID [Concomitant]
     Active Substance: LEVOTHYROXINE SODIUM
  3. LAMOTRIGINE [Concomitant]
     Active Substance: LAMOTRIGINE
  4. LEVOMEFOLATE CALCIUM [Concomitant]
     Active Substance: LEVOMEFOLATE CALCIUM
  5. HYDROCHLOROTHIAZIDE [Concomitant]
     Active Substance: HYDROCHLOROTHIAZIDE
  6. OMEPRAZOLE [Concomitant]
     Active Substance: OMEPRAZOLE
  7. PRAZOSIN [Concomitant]
     Active Substance: PRAZOSIN
  8. TOLTERODINE [Concomitant]
     Active Substance: TOLTERODINE
  9. OZEMPIC [Concomitant]
     Active Substance: SEMAGLUTIDE
  10. ONDANSETRON [Concomitant]
     Active Substance: ONDANSETRON
  11. VITAMIN D3 [Concomitant]
     Active Substance: CHOLECALCIFEROL
  12. METHYLCOBALAMIN [Concomitant]
     Active Substance: METHYLCOBALAMIN
  13. FLAXSEED [Concomitant]
     Active Substance: FLAX SEED
  14. tart cherry capsules [Concomitant]
  15. UNISOM SLEEPTABS [Concomitant]
     Active Substance: DOXYLAMINE SUCCINATE
  16. CINNAMON [Concomitant]
     Active Substance: CINNAMON
  17. apple cider vinegar capsules [Concomitant]
  18. MAGNESIUM [Concomitant]
     Active Substance: MAGNESIUM

REACTIONS (4)
  - Oropharyngeal pain [None]
  - Headache [None]
  - Vision blurred [None]
  - Irritability [None]

NARRATIVE: CASE EVENT DATE: 20240802
